FAERS Safety Report 16922584 (Version 4)
Quarter: 2019Q4

REPORT INFORMATION
  Report Type: Spontaneous
  Country: US (occurrence: US)
  Receive Date: 20191016
  Receipt Date: 20191118
  Transmission Date: 20200122
  Serious: Yes (Hospitalization)
  Sender: FDA-Public Use
  Company Number: US-UNITED THERAPEUTICS-UNT-2019-016815

PATIENT
  Age: 2 Year
  Sex: Female
  Weight: 13.52 kg

DRUGS (3)
  1. TRACLEER [Concomitant]
     Active Substance: BOSENTAN
     Indication: PRODUCT USED FOR UNKNOWN INDICATION
     Route: 065
  2. REMODULIN [Suspect]
     Active Substance: TREPROSTINIL
     Dosage: UNK, CONTINUING
     Route: 058
  3. REMODULIN [Suspect]
     Active Substance: TREPROSTINIL
     Indication: PULMONARY ARTERIAL HYPERTENSION
     Dosage: 0.0212 ?G/KG, CONTINUING
     Route: 058
     Dates: start: 20190930

REACTIONS (7)
  - Infusion site swelling [Unknown]
  - Diarrhoea [Unknown]
  - Infusion site erythema [Unknown]
  - Infusion site pain [Unknown]
  - Rhinovirus infection [Unknown]
  - Rhinorrhoea [Unknown]
  - Pyrexia [Unknown]

NARRATIVE: CASE EVENT DATE: 2019
